FAERS Safety Report 10252822 (Version 1)
Quarter: 2014Q2

REPORT INFORMATION
  Report Type: Spontaneous
  Country: US (occurrence: US)
  Receive Date: 20140623
  Receipt Date: 20140623
  Transmission Date: 20141212
  Serious: No
  Sender: FDA-Public Use
  Company Number: US-PFIZER INC-2014167273

PATIENT
  Age: 78 Year
  Sex: Male
  Weight: 63.49 kg

DRUGS (4)
  1. LIPITOR [Suspect]
     Indication: BLOOD CHOLESTEROL ABNORMAL
     Dosage: 40 MG, DAILY
     Dates: start: 2014, end: 201405
  2. TIKOSYN [Suspect]
     Indication: ARRHYTHMIA
     Dosage: 0.25 MG, 2X/DAY
  3. LABETALOL [Concomitant]
     Indication: HYPERTENSION
     Dosage: 200 MG, 2X/DAY
  4. CLONIDINE [Concomitant]
     Indication: HYPERTENSION
     Dosage: 0.2 MG, 2X/DAY

REACTIONS (1)
  - Muscle spasms [Unknown]
